FAERS Safety Report 4731190-9 (Version None)
Quarter: 2005Q3

REPORT INFORMATION
  Report Type: 
  Country: None (occurrence: None)
  Receive Date: 20050729
  Receipt Date: 20050729
  Transmission Date: 20060218
  Serious: Yes (Disabling)
  Sender: FDA-Public Use
  Company Number: None

PATIENT
  Sex: Male
  Weight: 61.2356 kg

DRUGS (1)
  1. ZOLOFT [Suspect]
     Indication: DEPRESSION
     Dosage: 25 MG/DAY FOR FIRST 3WKS THEN 50 MG DAILY
     Dates: start: 20020801, end: 20021001

REACTIONS (6)
  - BRAIN DAMAGE [None]
  - CONVULSION [None]
  - EPILEPSY [None]
  - GRAND MAL CONVULSION [None]
  - NUCLEAR MAGNETIC RESONANCE IMAGING BRAIN ABNORMAL [None]
  - PROCEDURAL COMPLICATION [None]
